FAERS Safety Report 20526594 (Version 2)
Quarter: 2022Q1

REPORT INFORMATION
  Report Type: Spontaneous
  Country: AU (occurrence: AU)
  Receive Date: 20220228
  Receipt Date: 20220321
  Transmission Date: 20220423
  Serious: Yes (Hospitalization, Other)
  Sender: FDA-Public Use
  Company Number: AU-NOVARTISPH-NVSC2022AU046115

PATIENT
  Age: 69 Year
  Sex: Female
  Weight: 100 kg

DRUGS (22)
  1. DABRAFENIB [Suspect]
     Active Substance: DABRAFENIB
     Indication: Metastatic malignant melanoma
     Dosage: 150 MG, BID (TAKE 2 CAPSULES TWICE A DAY AT LEAST ONE HOUR BEFORE OR TWO HOURS AFTER FOOD [NOT PACKE
     Route: 048
     Dates: start: 20190912, end: 20220216
  2. TRAMETINIB [Suspect]
     Active Substance: TRAMETINIB
     Indication: Metastatic malignant melanoma
     Dosage: 2 MG, QD (TAKE 1 TABLET IN THE MORNING AT LEAST ONE HOUR BEFORE OR TWO HOURS AFTER FOOD [NOT PACKED]
     Route: 048
     Dates: start: 20190912, end: 20220216
  3. OXYCODONE HYDROCHLORIDE [Concomitant]
     Active Substance: OXYCODONE HYDROCHLORIDE
     Indication: Breakthrough pain
     Dosage: 1 DOSAGE FORM, TID (MAXIMUM 6 TABLETS IN 24 HOURS)
     Route: 065
  4. ACETAMINOPHEN [Concomitant]
     Active Substance: ACETAMINOPHEN
     Indication: Pain
     Dosage: 1 DOSAGE FORM, TID MR TABS (TO NOT BE PACKED)
     Route: 065
  5. NALOXONE HYDROCHLORIDE\OXYCODONE HYDROCHLORIDE [Concomitant]
     Active Substance: NALOXONE HYDROCHLORIDE\OXYCODONE HYDROCHLORIDE
     Indication: Pain
     Dosage: (STRENGHT 20/10 MG) 1 DOSAGE FORM, QD, AT MORNING (CR TABS PACKED)
     Route: 065
  6. NALOXONE HYDROCHLORIDE\OXYCODONE HYDROCHLORIDE [Concomitant]
     Active Substance: NALOXONE HYDROCHLORIDE\OXYCODONE HYDROCHLORIDE
     Dosage: (STRENGHT 30/15 MG) 1 DOSAGE FORM, QD AT EVENING (CR TABS)
     Route: 065
  7. LYRICA [Concomitant]
     Active Substance: PREGABALIN
     Indication: Neuralgia
     Dosage: 1 DOSAGE FORM, BID (PACKED)
     Route: 065
  8. PRAMIPEXOLE [Concomitant]
     Active Substance: PRAMIPEXOLE
     Indication: Restless legs syndrome
     Dosage: 1 DOSAGE FORM, QD AT EVENING
     Route: 065
  9. RAMIPRIL [Concomitant]
     Active Substance: RAMIPRIL
     Indication: Blood pressure increased
     Dosage: 1 DOSAGE FORM, QD AT MORNING
     Route: 065
  10. CYMBALTA [Concomitant]
     Active Substance: DULOXETINE HYDROCHLORIDE
     Indication: Mental disorder
     Dosage: 1 DOSAGE FORM, QD AT MORNING
     Route: 065
  11. NEXIUM [Concomitant]
     Active Substance: ESOMEPRAZOLE MAGNESIUM
     Indication: Reflux gastritis
     Dosage: 1 DOSAGE FORM, QD AT MORNING
     Route: 065
  12. XARELTO [Concomitant]
     Active Substance: RIVAROXABAN
     Indication: Atrial fibrillation
     Dosage: 1 DOSAGE FORM, QD AT MORNING STARTED FROM THIS WEEK
     Route: 065
  13. TAMBOCOR [Concomitant]
     Active Substance: FLECAINIDE ACETATE
     Indication: Heart rate irregular
     Dosage: 1 DOSAGE FORM, BID, PACKED NEW THIS WEEK
     Route: 065
  14. PREDNISONE [Concomitant]
     Active Substance: PREDNISONE
     Indication: Rheumatoid arthritis
     Dosage: 1 DOSAGE FORM, QD (IN MORNING WITH FOOD)
     Route: 065
  15. CRESTOR [Concomitant]
     Active Substance: ROSUVASTATIN CALCIUM
     Indication: Prophylaxis
     Dosage: 1 DOSAGE FORM, QD IN MORNING
     Route: 065
  16. TIOTROPIUM [Concomitant]
     Active Substance: TIOTROPIUM
     Indication: Obstructive airways disorder
     Dosage: TAKE 1 TABLET IN THE IN MORNING PACKED, 60 ACTUATIONS INHALER
     Route: 065
  17. FORMOTEROL [Concomitant]
     Active Substance: FORMOTEROL
     Indication: Obstructive airways disorder
     Dosage: INHALE 2 DOSES TWICE A DAY RINSE MOUTH AFTER EACH USE (200MCG/6MCG (SYMBICORT 200/6) 120 DOSE TURBUH
     Route: 065
  18. ASMOL [Concomitant]
     Indication: Obstructive airways disorder
     Dosage: INHALE 2 PUFFS FOUR TIMES A DAY WHEN REQUIRED VIA SPACER
     Route: 065
  19. COLOXYL [Concomitant]
     Indication: Constipation
     Dosage: TAKE 2 - 3 TABLETS ONCE EACH DAY WHEN REQUIRED
     Route: 065
  20. ZOLPIDEM TARTRATE [Concomitant]
     Active Substance: ZOLPIDEM TARTRATE
     Indication: Insomnia
     Dosage: 1 DOSAGE FORM, QD AT NIGHT
     Route: 065
  21. FUROSEMIDE [Concomitant]
     Active Substance: FUROSEMIDE
     Indication: Discharge
     Dosage: 1 DOSAGE FORM, QD IN MORNING
     Route: 065
     Dates: start: 20220104
  22. ENDEP [Concomitant]
     Active Substance: AMITRIPTYLINE HYDROCHLORIDE
     Indication: Product used for unknown indication
     Dosage: CEASED GP TO REVIEW IF NECESSARY
     Route: 065

REACTIONS (10)
  - Abdominal pain [Recovered/Resolved]
  - Pyrexia [Unknown]
  - Pancreatitis acute [Recovering/Resolving]
  - Dyspepsia [Unknown]
  - Flank pain [Unknown]
  - Confusional state [Unknown]
  - Malaise [Unknown]
  - Abdominal pain upper [Unknown]
  - Abdominal tenderness [Unknown]
  - Abdominal distension [Unknown]

NARRATIVE: CASE EVENT DATE: 20220213
